FAERS Safety Report 7868193-1 (Version None)
Quarter: 2011Q4

REPORT INFORMATION
  Report Type: 
  Country: None (occurrence: None)
  Receive Date: 20111028
  Receipt Date: 20111020
  Transmission Date: 20120403
  Serious: Yes (Hospitalization, Other)
  Sender: FDA-Public Use
  Company Number: PHHY2011US93028

PATIENT
  Age: 50 Year
  Sex: Male

DRUGS (2)
  1. METFORMIN HCL [Suspect]
     Indication: TYPE 2 DIABETES MELLITUS
     Dosage: 500 MG, BID
  2. METFORMIN [Suspect]
     Dosage: 52 G, UNK

REACTIONS (10)
  - LACTIC ACIDOSIS [None]
  - RENAL FAILURE ACUTE [None]
  - URINE OUTPUT DECREASED [None]
  - DRUG LEVEL INCREASED [None]
  - ANURIA [None]
  - MENTAL STATUS CHANGES [None]
  - SUICIDE ATTEMPT [None]
  - INTENTIONAL OVERDOSE [None]
  - HYPOTENSION [None]
  - TOXICITY TO VARIOUS AGENTS [None]
